FAERS Safety Report 7869874-6 (Version None)
Quarter: 2011Q4

REPORT INFORMATION
  Report Type: 
  Country: None (occurrence: None)
  Receive Date: 20111027
  Receipt Date: 20111013
  Transmission Date: 20120403
  Serious: Yes (Other)
  Sender: FDA-Public Use
  Company Number: 2011-4006

PATIENT
  Age: 47 Year
  Sex: Male
  Weight: 90.3 kg

DRUGS (2)
  1. SOMATULINE DEPOT [Suspect]
     Indication: ACROMEGALY
     Dosage: 60MG (60 MG, 1 IN 28 D), SUBCUTANEOUS
     Route: 058
     Dates: start: 20110812
  2. MULTIVITAMIN [Concomitant]

REACTIONS (5)
  - NASOPHARYNGITIS [None]
  - VISION BLURRED [None]
  - INFLUENZA [None]
  - DIZZINESS [None]
  - NEOPLASM RECURRENCE [None]
